FAERS Safety Report 8187411-6 (Version None)
Quarter: 2012Q1

REPORT INFORMATION
  Report Type: 
  Country: None (occurrence: None)
  Receive Date: 20120302
  Receipt Date: 20120209
  Transmission Date: 20120608
  Serious: Yes (Hospitalization, Other)
  Sender: FDA-Public Use
  Company Number: HA12-028-AE

PATIENT
  Age: 36 Year
  Sex: Female
  Weight: 99.7913 kg

DRUGS (2)
  1. NAPROXEN [Suspect]
     Indication: INFLAMMATION
     Dosage: 1 TABLET, BID, ORAL
     Route: 048
     Dates: start: 20120123, end: 20120129
  2. VICODIN [Concomitant]

REACTIONS (2)
  - SPEECH DISORDER [None]
  - CONVULSION [None]
